FAERS Safety Report 20821940 (Version 1)
Quarter: 2022Q2

REPORT INFORMATION
  Report Type: Spontaneous
  Country: US (occurrence: US)
  Receive Date: 20220512
  Receipt Date: 20220512
  Transmission Date: 20220721
  Serious: No
  Sender: FDA-Public Use
  Company Number: US-ORGANON-O2205USA000667

PATIENT
  Sex: Female

DRUGS (4)
  1. PREGNYL [Suspect]
     Active Substance: CHORIOGONADOTROPIN ALFA
     Indication: Oocyte harvest
     Dosage: STRENGTH: 10.000UNIT MDV 60, DOSE: 10000 UNIT
     Route: 030
     Dates: start: 20220422
  2. STERILE WATER [Suspect]
     Active Substance: WATER
     Dosage: UNK
  3. MENOPUR [Concomitant]
     Active Substance: FOLLITROPIN\LUTEINIZING HORMONE
     Dosage: UNK
  4. ANDRODERM [Concomitant]
     Active Substance: TESTOSTERONE
     Dosage: UNK

REACTIONS (1)
  - Abdominal distension [Unknown]
